FAERS Safety Report 14344598 (Version 2)
Quarter: 2018Q1

REPORT INFORMATION
  Report Type: Report from Study
  Country: PL (occurrence: PL)
  Receive Date: 20180102
  Receipt Date: 20180111
  Transmission Date: 20180509
  Serious: Yes (Other)
  Sender: FDA-Public Use
  Company Number: PL-ROCHE-2045693

PATIENT
  Age: 55 Year
  Sex: Male
  Weight: 82 kg

DRUGS (1)
  1. ZELBORAF [Suspect]
     Active Substance: VEMURAFENIB
     Indication: MALIGNANT MELANOMA
     Route: 048
     Dates: start: 201312, end: 201404

REACTIONS (9)
  - Hepatotoxicity [Recovered/Resolved]
  - Sensory loss [Recovered/Resolved]
  - Skin burning sensation [Unknown]
  - Weight decreased [Recovered/Resolved]
  - Hypoaesthesia [Recovered/Resolved]
  - Skin disorder [Unknown]
  - Liver function test increased [Recovered/Resolved]
  - Cutaneous symptom [Recovered/Resolved]
  - Constipation [Recovered/Resolved]
